FAERS Safety Report 16041905 (Version 1)
Quarter: 2019Q1

REPORT INFORMATION
  Report Type: Spontaneous
  Country: US (occurrence: US)
  Receive Date: 20190306
  Receipt Date: 20190306
  Transmission Date: 20190418
  Serious: No
  Sender: FDA-Public Use
  Company Number: US-PFIZER INC-2019095053

PATIENT
  Age: 50 Year
  Sex: Female
  Weight: 81.65 kg

DRUGS (4)
  1. ZYPREXA [Concomitant]
     Active Substance: OLANZAPINE
     Indication: PSYCHOTIC DISORDER
     Dosage: UNK, 1X/DAY [ONCE AT BEDTIME]
     Route: 048
  2. LUVOX [Concomitant]
     Active Substance: FLUVOXAMINE MALEATE
     Indication: DEPRESSION
     Dosage: UNK, 1X/DAY`[IN THE MORNING]
     Route: 048
  3. TOPAMAX [Concomitant]
     Active Substance: TOPIRAMATE
     Indication: AFFECTIVE DISORDER
     Dosage: 100 MG, 2X/DAY
     Route: 048
  4. XELJANZ XR [Suspect]
     Active Substance: TOFACITINIB CITRATE
     Indication: RHEUMATOID ARTHRITIS
     Dosage: 11 MG, ONCE A DAY
     Route: 048
     Dates: start: 2018

REACTIONS (1)
  - Dizziness [Not Recovered/Not Resolved]
